FAERS Safety Report 21359374 (Version 2)
Quarter: 2022Q4

REPORT INFORMATION
  Report Type: Spontaneous
  Country: DE (occurrence: DE)
  Receive Date: 20220921
  Receipt Date: 20221227
  Transmission Date: 20230113
  Serious: Yes (Hospitalization)
  Sender: FDA-Public Use
  Company Number: None

PATIENT
  Age: 71 Year
  Sex: Female
  Weight: 75 kg

DRUGS (12)
  1. PEGFILGRASTIM [Suspect]
     Active Substance: PEGFILGRASTIM
     Dosage: 6 MG, SCHEME 11082020
     Route: 058
  2. VINCRISTINE SULFATE [Suspect]
     Active Substance: VINCRISTINE SULFATE
     Dosage: SCHEME 11082020
  3. DOXORUBICIN HYDROCHLORIDE [Suspect]
     Active Substance: DOXORUBICIN HYDROCHLORIDE
     Dosage: SCHEME 11082020
  4. CYCLOPHOSPHAMIDE [Suspect]
     Active Substance: CYCLOPHOSPHAMIDE
     Dosage: SCHEME 11082020
  5. PREDNISOLONE [Suspect]
     Active Substance: PREDNISOLONE
     Dosage: SCHEME 11082020
  6. TENOFOVIR DISOPROXIL [Concomitant]
     Active Substance: TENOFOVIR DISOPROXIL
     Dosage: 245 MG, 1-0-0-0
  7. THIAMINE [Concomitant]
     Active Substance: THIAMINE
     Dosage: 100 ?G, 1-0-0-0
  8. SULFAMETHOXAZOLE\TRIMETHOPRIM [Concomitant]
     Active Substance: SULFAMETHOXAZOLE\TRIMETHOPRIM
     Dosage: 800|160 MG, SCHEME
  9. LEVOTHYROXINE SODIUM [Concomitant]
     Active Substance: LEVOTHYROXINE SODIUM
     Dosage: 75 ?G, 1-0-0-0
  10. CHOLECALCIFEROL [Concomitant]
     Active Substance: CHOLECALCIFEROL
     Dosage: 1000 IE, 1-0-0-0
  11. METOPROLOL [Concomitant]
     Active Substance: METOPROLOL
     Dosage: 200 MG, 0.5-0-0-0
  12. ENALAPRIL/LERCANIDIPIN [Concomitant]
     Dosage: 10|10 MG, 1-0-0-0

REACTIONS (7)
  - Nausea [Unknown]
  - Condition aggravated [Unknown]
  - Anaemia [Unknown]
  - Weight decreased [Unknown]
  - General physical health deterioration [Unknown]
  - Presyncope [Unknown]
  - Hypertension [Unknown]
